FAERS Safety Report 24161074 (Version 1)
Quarter: 2024Q3

REPORT INFORMATION
  Report Type: Spontaneous
  Country: US (occurrence: US)
  Receive Date: 20240801
  Receipt Date: 20240801
  Transmission Date: 20241017
  Serious: Yes (Other)
  Sender: SANOFI AVENTIS
  Company Number: US-SA-SAC20240718000092

PATIENT
  Sex: Male
  Weight: 72.574 kg

DRUGS (1)
  1. DUPIXENT [Suspect]
     Active Substance: DUPILUMAB
     Dosage: 300 MG, QOW
     Route: 058

REACTIONS (5)
  - Diffuse large B-cell lymphoma [Unknown]
  - Otitis media chronic [Unknown]
  - Hypoacusis [Unknown]
  - Upper-airway cough syndrome [Unknown]
  - Condition aggravated [Unknown]
